FAERS Safety Report 8614911-4 (Version None)
Quarter: 2012Q3

REPORT INFORMATION
  Report Type: 
  Country: None (occurrence: None)
  Receive Date: 20120823
  Receipt Date: 20120821
  Transmission Date: 20120928
  Serious: Yes (Death)
  Sender: FDA-Public Use
  Company Number: US-CELGENEUS-163-21880-12061927

PATIENT
  Sex: Female

DRUGS (9)
  1. LEVOPHED [Concomitant]
     Route: 065
  2. FLAGYL [Concomitant]
     Route: 065
  3. ZOSYN [Concomitant]
     Route: 065
  4. SANTYL [Concomitant]
     Route: 065
  5. COMBIVENT [Concomitant]
     Route: 065
  6. DECADRON PHOSPHATE [Concomitant]
     Route: 065
  7. POTASSIUM [Concomitant]
     Route: 065
  8. REVLIMID [Suspect]
     Indication: MULTIPLE MYELOMA
     Dosage: 5 MILLIGRAM
     Route: 048
     Dates: start: 20120118
  9. TYLENOL [Concomitant]
     Route: 065

REACTIONS (5)
  - RENAL FAILURE CHRONIC [None]
  - RESPIRATORY FAILURE [None]
  - MULTIPLE MYELOMA [None]
  - LABORATORY TEST ABNORMAL [None]
  - CARDIAC ARREST [None]
